FAERS Safety Report 13133329 (Version 1)
Quarter: 2017Q1

REPORT INFORMATION
  Report Type: Spontaneous
  Country: US (occurrence: US)
  Receive Date: 20170119
  Receipt Date: 20170119
  Transmission Date: 20170428
  Serious: Yes (Hospitalization)
  Sender: FDA-Public Use
  Company Number: None

PATIENT
  Age: 65 Year
  Sex: Female
  Weight: 103.6 kg

DRUGS (1)
  1. SIMVASTATIN. [Suspect]
     Active Substance: SIMVASTATIN
     Indication: DEPRESSION
     Route: 048
     Dates: start: 20160827, end: 20161203

REACTIONS (5)
  - Vomiting [None]
  - Diarrhoea [None]
  - Myalgia [None]
  - Nausea [None]
  - Rhabdomyolysis [None]

NARRATIVE: CASE EVENT DATE: 20161202
